FAERS Safety Report 8104765-7 (Version None)
Quarter: 2012Q1

REPORT INFORMATION
  Report Type: 
  Country: None (occurrence: None)
  Receive Date: 20120201
  Receipt Date: 20120117
  Transmission Date: 20120608
  Serious: Yes (Hospitalization)
  Sender: FDA-Public Use
  Company Number: FR-ARROW GEN-2012-01442

PATIENT
  Age: 36 Year
  Sex: Female

DRUGS (5)
  1. OLANZAPINE [Suspect]
     Indication: MANIA
     Dosage: 10 MG, DAILY
     Route: 065
  2. OLANZAPINE [Suspect]
     Dosage: 20 MG, DAILY
     Route: 065
  3. VALPROATE SODIUM [Suspect]
     Indication: MANIA
     Dosage: 1500 MG, DAILY
     Route: 065
  4. VALPROATE SODIUM [Suspect]
     Dosage: 1000 MG, DAILY
     Route: 065
  5. DIAZEPAM [Suspect]
     Indication: AGITATION
     Dosage: 30 MG, DAILY
     Route: 065

REACTIONS (3)
  - ENCEPHALOPATHY [None]
  - DRUG INTERACTION [None]
  - COMA [None]
